FAERS Safety Report 23299768 (Version 1)
Quarter: 2023Q4

REPORT INFORMATION
  Report Type: Spontaneous
  Country: US (occurrence: US)
  Receive Date: 20231215
  Receipt Date: 20231215
  Transmission Date: 20240109
  Serious: Yes (Other)
  Sender: FDA-Public Use
  Company Number: US-STRIDES ARCOLAB LIMITED-2023SP013623

PATIENT
  Age: 1 Decade
  Sex: Male

DRUGS (8)
  1. PROPRANOLOL [Suspect]
     Active Substance: PROPRANOLOL HYDROCHLORIDE
     Indication: Long QT syndrome
     Dosage: UNK
     Route: 065
  2. PROPRANOLOL [Suspect]
     Active Substance: PROPRANOLOL HYDROCHLORIDE
     Indication: Torsade de pointes
  3. DILTIAZEM [Suspect]
     Active Substance: DILTIAZEM
     Indication: Long QT syndrome
     Dosage: UNK
     Route: 065
  4. DILTIAZEM [Suspect]
     Active Substance: DILTIAZEM
     Indication: Torsade de pointes
  5. MEXILETINE [Suspect]
     Active Substance: MEXILETINE
     Indication: Long QT syndrome
     Dosage: UNK
     Route: 065
  6. MEXILETINE [Suspect]
     Active Substance: MEXILETINE
     Indication: Torsade de pointes
  7. FLECAINIDE [Concomitant]
     Active Substance: FLECAINIDE
     Indication: Long QT syndrome
     Dosage: UNK
     Route: 065
  8. FLECAINIDE [Concomitant]
     Active Substance: FLECAINIDE
     Indication: Torsade de pointes

REACTIONS (2)
  - Drug ineffective [Unknown]
  - Off label use [Unknown]
